FAERS Safety Report 6615134-0 (Version None)
Quarter: 2010Q1

REPORT INFORMATION
  Report Type: 
  Country: None (occurrence: None)
  Receive Date: 20100305
  Receipt Date: 20100222
  Transmission Date: 20100710
  Serious: Yes (Hospitalization)
  Sender: FDA-Public Use
  Company Number: US-BRISTOL-MYERS SQUIBB COMPANY-14999957

PATIENT
  Age: 75 Year
  Sex: Male
  Weight: 83 kg

DRUGS (20)
  1. CETUXIMAB [Suspect]
     Indication: BLADDER CANCER
     Route: 042
     Dates: start: 20090928, end: 20100203
  2. CISPLATIN [Suspect]
     Indication: BLADDER CANCER
     Route: 042
     Dates: start: 20090928, end: 20100120
  3. GEMCITABINE [Suspect]
     Indication: BLADDER CANCER
     Route: 042
     Dates: start: 20090928, end: 20100120
  4. DEXAMETHASONE 4MG TAB [Concomitant]
     Indication: BLADDER CANCER
     Route: 065
     Dates: start: 20090928
  5. EMEND [Concomitant]
     Dosage: PRN
     Route: 065
     Dates: start: 20090928
  6. GABAPENTIN [Concomitant]
     Dosage: AT NIGHT
     Route: 065
  7. GLIPIZIDE [Concomitant]
     Route: 065
  8. LIPITOR [Concomitant]
     Dosage: AT NIGHT
     Route: 065
  9. LORAZEPAM [Concomitant]
     Dosage: Q4-6HRS
     Route: 065
  10. MAGNESIUM OXIDE [Concomitant]
     Route: 065
  11. ASCORBIC ACID [Concomitant]
     Route: 048
  12. ONDANSETRON [Concomitant]
     Route: 065
  13. OXYCODONE HCL [Concomitant]
     Dosage: Q6H
     Route: 065
  14. OXYCONTIN [Concomitant]
     Route: 065
  15. ZANTAC [Concomitant]
     Route: 065
  16. ZOLOFT [Concomitant]
     Route: 065
  17. LOVENOX [Concomitant]
     Route: 058
  18. CADUET [Concomitant]
     Route: 065
  19. AMBIEN [Concomitant]
     Dosage: AT NIGHT
     Route: 048
  20. ATIVAN [Concomitant]
     Dosage: AT NIGHT
     Route: 065

REACTIONS (3)
  - CONFUSIONAL STATE [None]
  - HEADACHE [None]
  - TRANSAMINASES INCREASED [None]
